FAERS Safety Report 14159004 (Version 1)
Quarter: 2017Q4

REPORT INFORMATION
  Report Type: Report from Study
  Country: US (occurrence: US)
  Receive Date: 20171103
  Receipt Date: 20171103
  Transmission Date: 20180321
  Serious: No
  Sender: FDA-Public Use
  Company Number: US-TARO-2017TAR00641

PATIENT
  Sex: Female

DRUGS (1)
  1. FLUOCINOLONE [Suspect]
     Active Substance: FLUOCINOLONE

REACTIONS (1)
  - Drug hypersensitivity [Unknown]
